FAERS Safety Report 5183084-5 (Version None)
Quarter: 2006Q4

REPORT INFORMATION
  Report Type: 
  Country: None (occurrence: None)
  Receive Date: 20061220
  Receipt Date: 20051212
  Transmission Date: 20070319
  Serious: No
  Sender: FDA-Public Use
  Company Number: US-GLAXOSMITHKLINE-A0585421A

PATIENT
  Sex: Female

DRUGS (12)
  1. NICODERM CQ [Suspect]
  2. HYDROCHLOROTHIAZIDE [Concomitant]
  3. SOMA [Concomitant]
     Indication: SPINAL CORD INJURY
     Route: 048
  4. PRILOSEC [Concomitant]
     Route: 048
  5. ZYRTEC [Concomitant]
     Route: 048
  6. VALIUM [Concomitant]
     Route: 048
  7. VYTORIN [Concomitant]
     Route: 048
  8. AVINZA [Concomitant]
     Route: 048
  9. TRAZODONE HCL [Concomitant]
     Route: 048
  10. ATACAND [Concomitant]
     Indication: HYPERTENSION
     Route: 048
  11. CELEBREX [Concomitant]
     Route: 048
  12. PREDNISONE TAB [Concomitant]
     Route: 048

REACTIONS (5)
  - DIZZINESS [None]
  - EYE ROLLING [None]
  - HEADACHE [None]
  - HEART RATE INCREASED [None]
  - NAUSEA [None]
